FAERS Safety Report 4945383-9 (Version None)
Quarter: 2006Q1

REPORT INFORMATION
  Report Type: 
  Country: None (occurrence: None)
  Receive Date: 20060315
  Receipt Date: 20060315
  Transmission Date: 20060701
  Serious: Yes (Life-Threatening)
  Sender: FDA-Public Use
  Company Number: None

PATIENT
  Age: 42 Year
  Sex: Male
  Weight: 97.0698 kg

DRUGS (2)
  1. ZOSYN [Suspect]
     Indication: IMPAIRED HEALING
     Dosage: 4.5 GM Q8H IV
     Route: 042
     Dates: start: 20060201, end: 20060221
  2. ZOSYN [Suspect]
     Indication: POSTOPERATIVE WOUND INFECTION
     Dosage: 4.5 GM Q8H IV
     Route: 042
     Dates: start: 20060201, end: 20060221

REACTIONS (12)
  - ALCOHOL WITHDRAWAL SYNDROME [None]
  - DIALYSIS [None]
  - DRUG HYPERSENSITIVITY [None]
  - HEPATITIS [None]
  - MYALGIA [None]
  - NEUTROPENIA [None]
  - PYREXIA [None]
  - RASH GENERALISED [None]
  - RENAL FAILURE [None]
  - RENAL TUBULAR NECROSIS [None]
  - RESPIRATORY FAILURE [None]
  - THROMBOCYTOPENIA [None]
